FAERS Safety Report 4312847-0 (Version None)
Quarter: 2004Q1

REPORT INFORMATION
  Report Type: 
  Country: None (occurrence: None)
  Receive Date: 20040304
  Receipt Date: 20040217
  Transmission Date: 20041129
  Serious: Yes (Hospitalization)
  Sender: FDA-Public Use
  Company Number: K200400226

PATIENT
  Age: 44 Year
  Sex: Female
  Weight: 54 kg

DRUGS (2)
  1. METHIMAZOLE [Suspect]
     Indication: HYPERTHYROIDISM
     Dosage: 10 MG, TID, UNK
     Route: 065
     Dates: start: 19930101, end: 19930101
  2. ACEBUTOLOL [Suspect]
     Dosage: 100 MG, TID, UNK
     Route: 065
     Dates: start: 19930101

REACTIONS (18)
  - ABDOMINAL PAIN [None]
  - ASTHENIA [None]
  - BONE MARROW DEPRESSION [None]
  - CHILLS [None]
  - DIARRHOEA [None]
  - DIZZINESS [None]
  - ENTEROCOLITIS [None]
  - ESCHERICHIA INFECTION [None]
  - GASTROINTESTINAL NECROSIS [None]
  - GASTROINTESTINAL ULCER [None]
  - GENERAL PHYSICAL HEALTH DETERIORATION [None]
  - INTESTINAL PERFORATION [None]
  - NEUTROPENIA [None]
  - PAIN IN EXTREMITY [None]
  - PANCYTOPENIA [None]
  - PERITONITIS [None]
  - PHARYNGITIS [None]
  - PYREXIA [None]
